FAERS Safety Report 8801897 (Version 2)
Quarter: 2012Q4

REPORT INFORMATION
  Report Type: 
  Country: IT (occurrence: IT)
  Receive Date: 20120921
  Receipt Date: 20121008
  Transmission Date: 20130627
  Serious: Yes (Hospitalization)
  Sender: FDA-Public Use
  Company Number: IT-PFIZER INC-2012232965

PATIENT
  Age: 67 Year
  Sex: Female

DRUGS (4)
  1. NORVASC [Suspect]
     Dosage: 5 mg, single
     Route: 048
     Dates: start: 20120915, end: 20120915
  2. TRIATEC [Suspect]
     Dosage: 5 mg, single
     Route: 048
     Dates: start: 20120915, end: 20120915
  3. ATENOLOL [Suspect]
     Dosage: unk
     Route: 065
  4. PRETERAX [Suspect]
     Indication: HYPERTENSION
     Dosage: Unk
     Route: 065

REACTIONS (3)
  - Drug administration error [Recovered/Resolved]
  - Hypotension [Recovered/Resolved]
  - Subendocardial ischaemia [Recovered/Resolved]
